FAERS Safety Report 6380581-1 (Version None)
Quarter: 2009Q3

REPORT INFORMATION
  Report Type: 
  Country: None (occurrence: None)
  Receive Date: 20090929
  Receipt Date: 20090826
  Transmission Date: 20100115
  Serious: No
  Sender: FDA-Public Use
  Company Number: US-BAYER-200931402NA

PATIENT
  Age: 27 Year
  Sex: Female
  Weight: 75 kg

DRUGS (2)
  1. MIRENA [Suspect]
     Indication: DRUG USE FOR UNKNOWN INDICATION
     Route: 015
     Dates: start: 20090101
  2. SUDAFED 12 HOUR [Concomitant]

REACTIONS (3)
  - MENORRHAGIA [None]
  - METRORRHAGIA [None]
  - NASOPHARYNGITIS [None]
